FAERS Safety Report 12293429 (Version 1)
Quarter: 2016Q2

REPORT INFORMATION
  Report Type: Report from Study
  Country: FR (occurrence: FR)
  Receive Date: 20160421
  Receipt Date: 20160421
  Transmission Date: 20160815
  Serious: Yes (Other)
  Sender: FDA-Public Use
  Company Number: FR-CELGENEUS-FRA-2015085260

PATIENT
  Age: 77 Year
  Sex: Male
  Weight: 77 kg

DRUGS (6)
  1. REVLIMID [Suspect]
     Active Substance: LENALIDOMIDE
     Indication: PLASMA CELL MYELOMA
     Route: 048
     Dates: start: 20150527
  2. KARDEGIC [Concomitant]
     Active Substance: ASPIRIN LYSINE
     Indication: ACUTE CORONARY SYNDROME
     Route: 058
  3. LOVENOX [Concomitant]
     Active Substance: ENOXAPARIN SODIUM
     Indication: ACUTE CORONARY SYNDROME
     Route: 058
  4. REVLIMID [Suspect]
     Active Substance: LENALIDOMIDE
     Dosage: DOSE REDUCED
     Route: 048
     Dates: start: 20150819
  5. LOVENOX [Concomitant]
     Active Substance: ENOXAPARIN SODIUM
     Route: 058
  6. DEXAMETHASONE. [Suspect]
     Active Substance: DEXAMETHASONE
     Indication: PLASMA CELL MYELOMA
     Route: 065
     Dates: start: 20150527

REACTIONS (1)
  - Optic nerve sheath haemorrhage [Recovered/Resolved]

NARRATIVE: CASE EVENT DATE: 20150807
